FAERS Safety Report 5528351-8 (Version None)
Quarter: 2007Q4

REPORT INFORMATION
  Report Type: 
  Country: None (occurrence: None)
  Receive Date: 20071128
  Receipt Date: 20071119
  Transmission Date: 20080405
  Serious: Yes (Death, Hospitalization, Other)
  Sender: FDA-Public Use
  Company Number: US-AVENTIS-200716574US

PATIENT
  Sex: Male

DRUGS (18)
  1. KETEK [Suspect]
     Indication: PNEUMONIA
     Dosage: DOSE: 400, 2 TAB
     Route: 048
     Dates: start: 20060801, end: 20060101
  2. KETEK [Suspect]
     Indication: BRONCHITIS
     Dosage: DOSE: 400, 2 TAB
     Route: 048
     Dates: start: 20060801, end: 20060101
  3. LOVASTATIN [Suspect]
     Route: 048
  4. GENTAMICIN [Suspect]
     Dosage: DOSE: UNK
     Dates: start: 20070901
  5. ``MIDODRINE [Concomitant]
     Dosage: DOSE: 5, PRIOR TO DIALYSIS
  6. WARFARIN SODIUM [Concomitant]
     Route: 048
  7. COREG [Concomitant]
  8. NEPHROVITE [Concomitant]
     Dosage: DOSE QUANTITY: 1
  9. ZANTAC [Concomitant]
  10. ALLOPURINOL [Concomitant]
     Route: 048
  11. ASPIRIN [Concomitant]
     Route: 048
  12. HYDRALAZINE HCL [Concomitant]
  13. LASIX [Concomitant]
  14. PHOSLO [Concomitant]
  15. PROZAC [Concomitant]
     Dosage: DOSE: UNK
  16. ZESTRIL [Concomitant]
     Route: 048
  17. DILTIAZEM [Concomitant]
     Route: 048
  18. AVELOX [Concomitant]
     Route: 048

REACTIONS (11)
  - BLOOD CREATINE PHOSPHOKINASE INCREASED [None]
  - CATHETER SEPSIS [None]
  - COAGULOPATHY [None]
  - DRUG INTERACTION [None]
  - DRUG TOXICITY [None]
  - LIVER DISORDER [None]
  - MUSCLE INJURY [None]
  - MYOPATHY [None]
  - RENAL FAILURE [None]
  - RHABDOMYOLYSIS [None]
  - STAPHYLOCOCCAL SEPSIS [None]
